FAERS Safety Report 21409285 (Version 2)
Quarter: 2023Q2

REPORT INFORMATION
  Report Type: Report from Study
  Country: CA (occurrence: CA)
  Receive Date: 20221004
  Receipt Date: 20230523
  Transmission Date: 20230722
  Serious: Yes (Hospitalization)
  Sender: FDA-Public Use
  Company Number: CA-MYLANLABS-2022M1032293

PATIENT
  Sex: Male

DRUGS (2)
  1. HULIO [Suspect]
     Active Substance: ADALIMUMAB-FKJP
     Indication: Crohn^s disease
     Dosage: 80 MILLIGRAM, QW (80 MG, EVERY 7 DAYS)
     Route: 065
  2. HULIO [Suspect]
     Active Substance: ADALIMUMAB-FKJP
     Dosage: 80 MILLIGRAM, QW (EVERY 7 DAYS)
     Route: 058
     Dates: start: 20211126

REACTIONS (7)
  - Condition aggravated [Unknown]
  - Dehydration [Unknown]
  - Cyst [Unknown]
  - Presyncope [Unknown]
  - Malaise [Unknown]
  - Hot flush [Unknown]
  - Therapy interrupted [Unknown]
